FAERS Safety Report 6712349-8 (Version None)
Quarter: 2010Q2

REPORT INFORMATION
  Report Type: 
  Country: None (occurrence: None)
  Receive Date: 20100505
  Receipt Date: 20100429
  Transmission Date: 20101027
  Serious: Yes (Other)
  Sender: FDA-Public Use
  Company Number: CA-ABBOTT-10P-028-0641722-00

PATIENT
  Sex: Male
  Weight: 80.1 kg

DRUGS (1)
  1. MAVIK [Suspect]
     Indication: ESSENTIAL HYPERTENSION
     Dosage: 1 MG DAILY
     Dates: start: 20090130

REACTIONS (1)
  - MYOCARDIAL INFARCTION [None]
